FAERS Safety Report 11398392 (Version 1)
Quarter: 2015Q3

REPORT INFORMATION
  Report Type: Spontaneous
  Country: US (occurrence: None)
  Receive Date: 20150728
  Receipt Date: 20150728
  Transmission Date: 20151125
  Serious: Yes (Other)
  Sender: FDA-Public Use
  Company Number: 15US001528

PATIENT
  Age: 22 Year
  Sex: Female
  Weight: 97.5 kg

DRUGS (1)
  1. MICONAZOLE NITRATE. [Suspect]
     Active Substance: MICONAZOLE NITRATE
     Indication: VULVOVAGINAL MYCOTIC INFECTION
     Route: 067
     Dates: start: 20150128, end: 20150128

REACTIONS (6)
  - Nausea [None]
  - Off label use [None]
  - Vulvovaginal burning sensation [None]
  - Vulvovaginal pruritus [None]
  - Hypersensitivity [None]
  - Vulvovaginal swelling [None]

NARRATIVE: CASE EVENT DATE: 20150128
